FAERS Safety Report 13203825 (Version 3)
Quarter: 2017Q2

REPORT INFORMATION
  Report Type: Spontaneous
  Country: BE (occurrence: BE)
  Receive Date: 20170209
  Receipt Date: 20170517
  Transmission Date: 20170830
  Serious: Yes (Hospitalization, Other)
  Sender: FDA-Public Use
  Company Number: BE-ASTRAZENECA-2017SE12667

PATIENT
  Sex: Female
  Weight: 90 kg

DRUGS (4)
  1. LYNPARZA [Suspect]
     Active Substance: OLAPARIB
     Indication: OVARIAN CANCER
     Route: 048
     Dates: start: 20160101, end: 20161228
  2. LYNPARZA [Suspect]
     Active Substance: OLAPARIB
     Indication: OVARIAN CANCER
     Route: 048
  3. NEXIUM [Concomitant]
     Active Substance: ESOMEPRAZOLE MAGNESIUM
     Indication: GASTRITIS
     Route: 048
  4. MAGNESIUM [Concomitant]
     Active Substance: MAGNESIUM
     Dosage: 3 BAGS A DAY
     Route: 048
     Dates: start: 2016

REACTIONS (4)
  - Recurrent cancer [Unknown]
  - Small intestinal obstruction [Recovering/Resolving]
  - Intestinal fibrosis [Unknown]
  - Anastomotic leak [Unknown]

NARRATIVE: CASE EVENT DATE: 20161228
